FAERS Safety Report 15716919 (Version 1)
Quarter: 2018Q4

REPORT INFORMATION
  Report Type: Spontaneous
  Country: GB (occurrence: GB)
  Receive Date: 20181213
  Receipt Date: 20181213
  Transmission Date: 20190205
  Serious: Yes (Other)
  Sender: FDA-Public Use
  Company Number: GB-AUROBINDO-AUR-APL-2018-059562

PATIENT
  Age: 71 Year
  Sex: Female
  Weight: 61 kg

DRUGS (4)
  1. AMLODIPINE [Suspect]
     Active Substance: AMLODIPINE BESYLATE
     Indication: PRODUCT USED FOR UNKNOWN INDICATION
     Dosage: 5 MILLIGRAM, ONCE A DAY
     Route: 065
     Dates: start: 20181112
  2. DIPROBASE                          /01210201/ [Concomitant]
     Indication: PRODUCT USED FOR UNKNOWN INDICATION
     Dosage: UNK, APPLY AS NECESSARY
     Route: 065
     Dates: start: 20140624
  3. CIMETIDINE [Concomitant]
     Active Substance: CIMETIDINE
     Indication: PRODUCT USED FOR UNKNOWN INDICATION
     Dosage: 4 DOSAGE FORM, ONCE A DAY
     Route: 065
     Dates: start: 20150708
  4. FLUPENTIXOL [Concomitant]
     Active Substance: FLUPENTIXOL
     Indication: PRODUCT USED FOR UNKNOWN INDICATION
     Dosage: 2 DOSAGE FORM, ONCE A DAY (1 IN THE MORNING 1 AT NIGHT)
     Route: 065
     Dates: start: 20180601

REACTIONS (1)
  - Sleep disorder [Recovering/Resolving]
